FAERS Safety Report 21018479 (Version 1)
Quarter: 2022Q2

REPORT INFORMATION
  Report Type: Spontaneous
  Country: US (occurrence: None)
  Receive Date: 20220628
  Receipt Date: 20220628
  Transmission Date: 20220721
  Serious: Yes (Hospitalization)
  Sender: FDA-Public Use
  Company Number: None

PATIENT
  Age: 47 Year
  Sex: Female
  Weight: 100.7 kg

DRUGS (3)
  1. TAXOTERE [Suspect]
     Active Substance: DOCETAXEL
     Indication: Product used for unknown indication
     Dates: end: 20210429
  2. PERTUZUMAB [Suspect]
     Active Substance: PERTUZUMAB
     Indication: Product used for unknown indication
     Dates: end: 20210429
  3. TRASTUZUMAB [Suspect]
     Active Substance: TRASTUZUMAB
     Indication: Product used for unknown indication
     Dates: end: 20210429

REACTIONS (7)
  - Pain [None]
  - Headache [None]
  - Chest pain [None]
  - Dyspnoea [None]
  - Hypertension [None]
  - Pulmonary embolism [None]
  - Adverse drug reaction [None]

NARRATIVE: CASE EVENT DATE: 20210504
